FAERS Safety Report 10913833 (Version 2)
Quarter: 2015Q2

REPORT INFORMATION
  Report Type: Spontaneous
  Country: US (occurrence: US)
  Receive Date: 20150313
  Receipt Date: 20150408
  Transmission Date: 20150821
  Serious: Yes (Death, Other)
  Sender: FDA-Public Use
  Company Number: US-JNJFOC-20150307098

PATIENT
  Age: 27 Year
  Sex: Female

DRUGS (1)
  1. REMICADE [Suspect]
     Active Substance: INFLIXIMAB
     Indication: CROHN^S DISEASE
     Route: 042

REACTIONS (5)
  - Off label use [Unknown]
  - Vasculitis necrotising [Fatal]
  - Peritoneal haemorrhage [Fatal]
  - Staphylococcal abscess [Recovered/Resolved]
  - Incorrect dose administered [Unknown]
